FAERS Safety Report 8211151-8 (Version None)
Quarter: 2012Q1

REPORT INFORMATION
  Report Type: 
  Country: None (occurrence: None)
  Receive Date: 20120315
  Receipt Date: 20120307
  Transmission Date: 20120608
  Serious: Yes (Hospitalization, Other)
  Sender: FDA-Public Use
  Company Number: US-BAYER-201033321NA

PATIENT
  Age: 46 Year
  Sex: Female
  Weight: 126.98 kg

DRUGS (3)
  1. YASMIN [Suspect]
     Route: 048
  2. YAZ [Suspect]
     Indication: UTERINE LEIOMYOMA
     Dosage: UNK
     Route: 048
     Dates: start: 20031101, end: 20040201
  3. YAZ [Suspect]
     Indication: MENORRHAGIA

REACTIONS (5)
  - DEPRESSION [None]
  - FEAR [None]
  - DEEP VEIN THROMBOSIS [None]
  - ANXIETY [None]
  - MENTAL DISORDER [None]
